FAERS Safety Report 6094273-X (Version None)
Quarter: 2009Q1

REPORT INFORMATION
  Report Type: 
  Country: None (occurrence: None)
  Receive Date: 20090223
  Receipt Date: 20090205
  Transmission Date: 20090719
  Serious: Yes (Other)
  Sender: FDA-Public Use
  Company Number: AU-1168589

PATIENT
  Age: 85 Year
  Sex: Male

DRUGS (9)
  1. SYSTANE  (SYSTANE) EYE DROPS [Suspect]
     Indication: DRY EYE
     Dosage: OPTHALMIC
     Route: 047
  2. ATENOLOL [Concomitant]
  3. PERINDOPRIL ERBUMINE [Concomitant]
  4. METFORMIN HCL [Concomitant]
  5. ATORVASTATIN CALCIUM [Concomitant]
  6. HYDROCORTISONE [Concomitant]
  7. BRIMONIDINE (BRIMONIDINE) [Concomitant]
  8. BRIMONIDINE TARTRATE [Concomitant]
  9. CHLORAMPHENICOL [Concomitant]

REACTIONS (6)
  - CONDITION AGGRAVATED [None]
  - CONJUNCTIVAL BLEB [None]
  - DRY SKIN [None]
  - ERYTHEMA [None]
  - LICHENIFICATION [None]
  - SWELLING [None]
